FAERS Safety Report 25659668 (Version 2)
Quarter: 2025Q3

REPORT INFORMATION
  Report Type: Spontaneous
  Country: US (occurrence: US)
  Receive Date: 20250808
  Receipt Date: 20250818
  Transmission Date: 20251021
  Serious: No
  Sender: LUNDBECK
  Company Number: US-LUNDBECK-DKLU4017923

PATIENT
  Age: 22 Month
  Sex: Male

DRUGS (2)
  1. SABRIL [Suspect]
     Active Substance: VIGABATRIN
     Indication: Infantile spasms
     Dosage: 10 MILLILITRE
     Route: 048
     Dates: start: 20250409
  2. SABRIL [Suspect]
     Active Substance: VIGABATRIN
     Dosage: 20 MILLILITRE
     Route: 048
     Dates: start: 20250409

REACTIONS (3)
  - Regurgitation [Unknown]
  - Malaise [Unknown]
  - Product dose omission issue [Unknown]
